FAERS Safety Report 6302418-9 (Version None)
Quarter: 2009Q3

REPORT INFORMATION
  Report Type: 
  Country: None (occurrence: None)
  Receive Date: 20090810
  Receipt Date: 20090730
  Transmission Date: 20100115
  Serious: Yes (Death)
  Sender: FDA-Public Use
  Company Number: US-JNJFOC-20090710011

PATIENT
  Sex: Male
  Weight: 78.93 kg

DRUGS (11)
  1. REMICADE [Suspect]
     Indication: ANKYLOSING SPONDYLITIS
     Dosage: RECEIVED 2 DOSES
     Route: 042
  2. LEFLUNOMIDE [Concomitant]
     Route: 048
  3. LISINOPRIL [Concomitant]
     Route: 048
  4. MELOXICAM [Concomitant]
     Route: 048
  5. MUCINEX [Concomitant]
     Route: 048
  6. OMEPRAZOLE [Concomitant]
  7. OXYCODONE HCL [Concomitant]
     Route: 048
  8. OXYCODONE HCL AND ACETAMINOPHEN [Concomitant]
     Route: 048
  9. PREDNISONE [Concomitant]
     Route: 048
  10. SIMVASTATIN [Concomitant]
     Route: 048
  11. SOLU-CORTEF [Concomitant]
     Indication: PREMEDICATION

REACTIONS (3)
  - ANKYLOSING SPONDYLITIS [None]
  - HISTOPLASMOSIS [None]
  - LUMBAR RADICULOPATHY [None]
